FAERS Safety Report 19682314 (Version 3)
Quarter: 2021Q3

REPORT INFORMATION
  Report Type: Spontaneous
  Country: FR (occurrence: FR)
  Receive Date: 20210811
  Receipt Date: 20210930
  Transmission Date: 20211014
  Serious: Yes (Hospitalization, Other)
  Sender: FDA-Public Use
  Company Number: FR-AMGEN-FRASP2021103726

PATIENT
  Sex: Female

DRUGS (6)
  1. PALBOCICLIB [Concomitant]
     Active Substance: PALBOCICLIB
     Indication: HORMONE RECEPTOR POSITIVE BREAST CANCER
     Dosage: 125 MILLIGRAM
     Dates: start: 20190705, end: 20210528
  2. PERTUZUMAB. [Suspect]
     Active Substance: PERTUZUMAB
     Indication: HORMONE RECEPTOR POSITIVE BREAST CANCER
     Dosage: 420 MILLIGRAM/KILOGRAM, Q3WK
     Route: 065
     Dates: start: 20190705, end: 20210528
  3. TAZOCILLINE [Suspect]
     Active Substance: PIPERACILLIN SODIUM\TAZOBACTAM SODIUM
     Indication: PRODUCT USED FOR UNKNOWN INDICATION
     Dosage: UNK
     Route: 065
  4. FULVESTRANT. [Suspect]
     Active Substance: FULVESTRANT
     Dosage: 2.5 MILLIGRAM, QD
     Route: 065
     Dates: start: 20190705
  5. FULVESTRANT. [Suspect]
     Active Substance: FULVESTRANT
     Indication: HORMONE RECEPTOR POSITIVE BREAST CANCER
     Dosage: 500 MILLIGRAM, QMO
     Route: 065
     Dates: start: 20190705
  6. TRASTUZUMAB. [Suspect]
     Active Substance: TRASTUZUMAB
     Indication: HORMONE RECEPTOR POSITIVE BREAST CANCER
     Dosage: 6 MILLIGRAM/KILOGRAM, Q3WK
     Route: 065
     Dates: start: 20190705

REACTIONS (3)
  - Volvulus [Recovered/Resolved]
  - Off label use [Unknown]
  - Pyrexia [Recovered/Resolved]

NARRATIVE: CASE EVENT DATE: 20190705
